FAERS Safety Report 5110460-9 (Version None)
Quarter: 2006Q3

REPORT INFORMATION
  Report Type: 
  Country: None (occurrence: None)
  Receive Date: 20060921
  Receipt Date: 20060911
  Transmission Date: 20061208
  Serious: Yes (Other)
  Sender: FDA-Public Use
  Company Number: DK-BRISTOL-MYERS SQUIBB COMPANY-13504493

PATIENT
  Age: 61 Year
  Sex: Female

DRUGS (4)
  1. DASATINIB [Suspect]
     Indication: CHRONIC MYELOID LEUKAEMIA
     Route: 048
     Dates: start: 20051213
  2. CORODIL [Concomitant]
  3. ALLOPURINOL [Concomitant]
     Dates: start: 20051031
  4. ARTHROTEC [Concomitant]

REACTIONS (1)
  - INDURATION [None]
